FAERS Safety Report 16753679 (Version 1)
Quarter: 2019Q3

REPORT INFORMATION
  Report Type: Spontaneous
  Country: US (occurrence: US)
  Receive Date: 20190829
  Receipt Date: 20190829
  Transmission Date: 20191005
  Serious: Yes (Other)
  Sender: FDA-Public Use
  Company Number: US-TEVA-2019-US-1098622

PATIENT
  Sex: Female

DRUGS (1)
  1. VANDAZOLE [Suspect]
     Active Substance: METRONIDAZOLE
     Indication: BACTERIAL VAGINOSIS
     Route: 065
     Dates: start: 201905, end: 201906

REACTIONS (9)
  - Maternal exposure during pregnancy [Unknown]
  - Seizure [Unknown]
  - Dehydration [Unknown]
  - Abortion spontaneous [Unknown]
  - Dizziness [Unknown]
  - Balance disorder [Unknown]
  - Rash [Unknown]
  - Dyspnoea [Unknown]
  - Vaginal discharge [Unknown]

NARRATIVE: CASE EVENT DATE: 2019
